FAERS Safety Report 8800577 (Version 1)
Quarter: 2012Q4

REPORT INFORMATION
  Report Type: 
  Country: IE (occurrence: IE)
  Receive Date: 20120921
  Receipt Date: 20120921
  Transmission Date: 20130627
  Serious: Yes (Other)
  Sender: FDA-Public Use
  Company Number: PHHY2012IE078731

PATIENT
  Age: 77 Year
  Sex: Female

DRUGS (2)
  1. VATAN SANDOZ [Suspect]
     Indication: HYPERTENSION
     Dosage: 80 mg daily
     Route: 048
  2. ASPIRIN [Concomitant]

REACTIONS (4)
  - Vision blurred [Recovering/Resolving]
  - Pain [Recovering/Resolving]
  - Rash [Not Recovered/Not Resolved]
  - Vertigo [Recovering/Resolving]
